FAERS Safety Report 12039225 (Version 1)
Quarter: 2016Q1

REPORT INFORMATION
  Report Type: Report from Study
  Country: US (occurrence: US)
  Receive Date: 20160208
  Receipt Date: 20160208
  Transmission Date: 20160526
  Serious: No
  Sender: FDA-Public Use
  Company Number: US-AMAG PHARMACEUTICALS, INC.-AMAG201501152

PATIENT

DRUGS (1)
  1. MAKENA [Suspect]
     Active Substance: HYDROXYPROGESTERONE CAPROATE
     Indication: PREMATURE DELIVERY
     Dosage: 250 MG, WEEKLY
     Route: 030
     Dates: start: 20151009

REACTIONS (3)
  - Blood glucose decreased [Recovered/Resolved]
  - Hypotension [Recovered/Resolved]
  - Uterine contractions during pregnancy [Recovered/Resolved]

NARRATIVE: CASE EVENT DATE: 20151010
